FAERS Safety Report 7288579-6 (Version None)
Quarter: 2011Q1

REPORT INFORMATION
  Report Type: 
  Country: None (occurrence: None)
  Receive Date: 20110211
  Receipt Date: 20110201
  Transmission Date: 20110831
  Serious: Yes (Hospitalization, Other)
  Sender: FDA-Public Use
  Company Number: GB-ELI_LILLY_AND_COMPANY-GB200806001371

PATIENT
  Age: 48 Year
  Sex: Male

DRUGS (8)
  1. ZYPREXA [Suspect]
     Indication: SCHIZOPHRENIA
     Dosage: 20 MG, DAILY (1/D)
     Route: 065
  2. SIMVASTATIN [Concomitant]
     Indication: HYPERCHOLESTEROLAEMIA
     Dosage: 20 MG, DAILY (1/D)
     Route: 065
  3. ZYPREXA [Suspect]
     Dosage: 25 MG, DAILY (1/D)
     Route: 065
  4. RISPERIDONE [Concomitant]
     Indication: SCHIZOPHRENIA, PARANOID TYPE
     Dosage: 6 MG, DAILY (1/D)
     Route: 048
  5. ARIPIPRAZOLE [Concomitant]
     Dosage: 20 MG, DAILY (1/D)
     Route: 065
  6. ARIPIPRAZOLE [Concomitant]
     Indication: SCHIZOPHRENIA, PARANOID TYPE
     Dosage: 15 MG, DAILY (1/D)
     Route: 065
  7. PERINDOPRIL [Concomitant]
     Indication: HYPERTENSION
     Dosage: 4 MG, DAILY (1/D)
     Route: 065
  8. AMLODIPINE [Concomitant]
     Indication: HYPERTENSION
     Dosage: 10 MG, DAILY (1/D)
     Route: 065

REACTIONS (8)
  - SCHIZOPHRENIA [None]
  - OVERDOSE [None]
  - DRUG WITHDRAWAL SYNDROME [None]
  - TREATMENT NONCOMPLIANCE [None]
  - URINARY INCONTINENCE [None]
  - WEIGHT INCREASED [None]
  - TYPE 2 DIABETES MELLITUS [None]
  - HYPOGLYCAEMIA [None]
